FAERS Safety Report 4760448-2 (Version None)
Quarter: 2005Q3

REPORT INFORMATION
  Report Type: 
  Country: None (occurrence: None)
  Receive Date: 20050902
  Receipt Date: 20050822
  Transmission Date: 20060218
  Serious: Yes (Hospitalization)
  Sender: FDA-Public Use
  Company Number: FR-BRISTOL-MYERS SQUIBB COMPANY-13087192

PATIENT
  Age: 75 Year
  Sex: Female

DRUGS (3)
  1. FUNGIZONE [Suspect]
     Indication: PYELONEPHRITIS
     Dates: start: 20050619, end: 20050704
  2. CIFLOX [Suspect]
     Indication: PYELONEPHRITIS
     Dates: start: 20050619, end: 20050703
  3. IMOVANE [Concomitant]
     Indication: SLEEP DISORDER

REACTIONS (2)
  - PRURITUS [None]
  - PURPURA [None]
